FAERS Safety Report 14676110 (Version 1)
Quarter: 2018Q1

REPORT INFORMATION
  Report Type: Spontaneous
  Country: NL (occurrence: NL)
  Receive Date: 20180323
  Receipt Date: 20180323
  Transmission Date: 20180509
  Serious: Yes (Hospitalization)
  Sender: FDA-Public Use
  Company Number: NL-TEVA-2018-NL-871308

PATIENT
  Age: 46 Year
  Sex: Male
  Weight: 62 kg

DRUGS (3)
  1. RIBAVIRINE FILMOMHULDE TABLET, 200 MG TEVA [Suspect]
     Active Substance: RIBAVIRIN
     Indication: HEPATITIS E
     Dosage: 800 MG. PER DAY
     Dates: start: 20160916, end: 20160924
  2. CELLCEPT [Concomitant]
     Active Substance: MYCOPHENOLATE MOFETIL\MYCOPHENOLATE MOFETIL HYDROCHLORIDE
  3. PROGRAFT [Concomitant]
     Active Substance: TACROLIMUS

REACTIONS (1)
  - Psychotic disorder [Unknown]

NARRATIVE: CASE EVENT DATE: 20160916
